FAERS Safety Report 4296885-2 (Version None)
Quarter: 2004Q1

REPORT INFORMATION
  Report Type: 
  Country: None (occurrence: None)
  Receive Date: 20040126
  Receipt Date: 20030908
  Transmission Date: 20041129
  Serious: No
  Sender: FDA-Public Use
  Company Number: USA030946580

PATIENT
  Age: 9 Year
  Sex: Female

DRUGS (2)
  1. STRATTERA [Suspect]
     Indication: ATTENTION DEFICIT/HYPERACTIVITY DISORDER
     Dosage: UNK
     Route: 065
     Dates: start: 20030801
  2. RITALIN [Concomitant]

REACTIONS (4)
  - CRYING [None]
  - FEELING ABNORMAL [None]
  - MEMORY IMPAIRMENT [None]
  - THINKING ABNORMAL [None]
